FAERS Safety Report 9170713 (Version 1)
Quarter: 2013Q1

REPORT INFORMATION
  Report Type: Spontaneous
  Country: GB (occurrence: GB)
  Receive Date: 20130319
  Receipt Date: 20130319
  Transmission Date: 20140127
  Serious: Yes (Other)
  Sender: FDA-Public Use
  Company Number: GB-TEVA-390997ISR

PATIENT
  Sex: Male

DRUGS (5)
  1. OXALIPLATIN [Suspect]
     Indication: PRODUCT USED FOR UNKNOWN INDICATION
     Dosage: DOSAGE FORM: UNSPECIFIED
     Route: 065
  2. DARUNAVIR [Interacting]
     Indication: HIV INFECTION
     Dosage: 800 MILLIGRAM DAILY;
     Route: 048
  3. AVASTIN [Interacting]
     Indication: PRODUCT USED FOR UNKNOWN INDICATION
     Dosage: DOSAGE FORM: UNSPECIFIED
     Route: 065
  4. EMTRICITABINE [Concomitant]
     Indication: HIV INFECTION
     Dosage: 200 MILLIGRAM DAILY; DOSAGE FORM: UNSPECIFIED
     Route: 065
  5. RALTEGRAVIR [Concomitant]
     Indication: HIV INFECTION
     Dosage: 800 MILLIGRAM DAILY; DOSAGE FORM: UNSPECIFIED
     Route: 065

REACTIONS (2)
  - Gastrointestinal carcinoma [Unknown]
  - Drug interaction [Unknown]
